FAERS Safety Report 8386325-6 (Version None)
Quarter: 2012Q2

REPORT INFORMATION
  Report Type: 
  Country: None (occurrence: None)
  Receive Date: 20120525
  Receipt Date: 20120313
  Transmission Date: 20120825
  Serious: No
  Sender: FDA-Public Use
  Company Number: US-VERTEX PHARMACEUTICALS INC.-AE-2012-003610

PATIENT
  Age: 17 Year
  Sex: Female
  Weight: 49.94 kg

DRUGS (11)
  1. CREON [Concomitant]
  2. ALLEGRA [Concomitant]
  3. PREVACID [Concomitant]
  4. ABILIFY [Concomitant]
  5. VITAMIN D [Concomitant]
  6. KALYDECO [Suspect]
     Indication: CYSTIC FIBROSIS
     Route: 048
     Dates: start: 20120307
  7. WELLBUTRIN [Concomitant]
  8. INSULIN [Concomitant]
  9. SINGULAIR [Concomitant]
  10. REGLAN [Concomitant]
  11. VERAMYST [Concomitant]

REACTIONS (1)
  - MIGRAINE [None]
